FAERS Safety Report 17984855 (Version 2)
Quarter: 2020Q3

REPORT INFORMATION
  Report Type: Spontaneous
  Country: US (occurrence: US)
  Receive Date: 20200706
  Receipt Date: 20200728
  Transmission Date: 20201103
  Serious: Yes (Death)
  Sender: FDA-Public Use
  Company Number: US-PFIZER INC-2020256037

PATIENT
  Age: 55 Year
  Sex: Male

DRUGS (5)
  1. AMIKACIN. [Suspect]
     Active Substance: AMIKACIN
     Indication: MYCOBACTERIUM ABSCESSUS INFECTION
     Dosage: UNK
     Route: 042
  2. ETHIONAMIDE [Suspect]
     Active Substance: ETHIONAMIDE
     Dosage: 200 MG, 3X/DAY
     Route: 048
  3. ETHIONAMIDE [Suspect]
     Active Substance: ETHIONAMIDE
     Indication: MYCOBACTERIUM ABSCESSUS INFECTION
     Dosage: UNK
  4. ERYTHROMYCIN. [Suspect]
     Active Substance: ERYTHROMYCIN
     Indication: MYCOBACTERIUM ABSCESSUS INFECTION
     Dosage: UNK
  5. GENTAMICIN. [Concomitant]
     Active Substance: GENTAMICIN
     Indication: ENDOCARDITIS BACTERIAL
     Dosage: 1.5 MG/KG, 3X/DAY
     Route: 042

REACTIONS (3)
  - Hypotension [Fatal]
  - Off label use [Fatal]
  - Drug ineffective for unapproved indication [Fatal]
